FAERS Safety Report 7250396 (Version 2)
Quarter: 2015Q4

REPORT INFORMATION
  Report Type: Spontaneous
  Country: US (occurrence: US)
  Receive Date: 20100120
  Receipt Date: 20151217
  Transmission Date: 20160305
  Serious: No
  Sender: FDA-Public Use
  Company Number: US-BRISTOL-MYERS SQUIBB COMPANY-14798862

PATIENT
  Sex: Female

DRUGS (2)
  1. ERBITUX [Suspect]
     Active Substance: CETUXIMAB
     Indication: PRODUCT USED FOR UNKNOWN INDICATION
     Dosage: UNK
     Route: 050
     Dates: end: 20061220
  2. BRIPLATIN [Suspect]
     Active Substance: CISPLATIN
     Indication: PRODUCT USED FOR UNKNOWN INDICATION
     Dosage: UNK
     Route: 050
     Dates: end: 20061220

REACTIONS (2)
  - Normal newborn [Unknown]
  - Exposure via body fluid [Unknown]

NARRATIVE: CASE EVENT DATE: 20081120
